FAERS Safety Report 15693035 (Version 1)
Quarter: 2018Q4

REPORT INFORMATION
  Report Type: Spontaneous
  Country: GB (occurrence: GB)
  Receive Date: 20181206
  Receipt Date: 20181206
  Transmission Date: 20190205
  Serious: Yes (Other)
  Sender: FDA-Public Use
  Company Number: GB-AMGEN-GBRSP2018173811

PATIENT
  Sex: Female

DRUGS (1)
  1. ENBREL [Suspect]
     Active Substance: ETANERCEPT
     Indication: ANKYLOSING SPONDYLITIS
     Dosage: UNK
     Route: 065
     Dates: start: 2015, end: 20181129

REACTIONS (6)
  - Injection site reaction [Unknown]
  - Menstrual disorder [Unknown]
  - Iritis [Unknown]
  - Injection site pruritus [Unknown]
  - Menorrhagia [Unknown]
  - Colitis ulcerative [Unknown]
